FAERS Safety Report 15482623 (Version 2)
Quarter: 2018Q4

REPORT INFORMATION
  Report Type: Spontaneous
  Country: US (occurrence: US)
  Receive Date: 20181010
  Receipt Date: 20181113
  Transmission Date: 20190205
  Serious: Yes (Other)
  Sender: FDA-Public Use
  Company Number: US-PFIZER INC-2018401325

PATIENT
  Age: 66 Year
  Sex: Male
  Weight: 68.4 kg

DRUGS (1)
  1. NICOTROL [Suspect]
     Active Substance: NICOTINE
     Indication: SMOKING CESSATION THERAPY
     Dosage: 10 MG, AS NEEDED (5 MG SPRAY IN EACH NOSTRIL AS NEEDED, 10 MG TOTAL)
     Route: 045
     Dates: start: 20180910, end: 20180930

REACTIONS (6)
  - Product quality issue [Unknown]
  - Euphoric mood [Unknown]
  - Wrong dose [Unknown]
  - Weight decreased [Unknown]
  - Hypophagia [Unknown]
  - Choking [Unknown]

NARRATIVE: CASE EVENT DATE: 201809
